FAERS Safety Report 21787028 (Version 1)
Quarter: 2022Q4

REPORT INFORMATION
  Report Type: Spontaneous
  Country: CA (occurrence: CA)
  Receive Date: 20221228
  Receipt Date: 20221228
  Transmission Date: 20230113
  Serious: Yes (Other)
  Sender: FDA-Public Use
  Company Number: CA-CELLTRION INC.-2021CA018695

PATIENT

DRUGS (10)
  1. INFLECTRA [Suspect]
     Active Substance: INFLIXIMAB-DYYB
     Indication: Rheumatoid arthritis
     Dosage: 300 MG INDUCTION AT WEEK 0, 2, 6, THEN EVERY 8 WEEKS
     Route: 042
     Dates: start: 20210125, end: 20210125
  2. INFLECTRA [Suspect]
     Active Substance: INFLIXIMAB-DYYB
     Dosage: 300 MG INDUCTION AT WEEK 0, 2, 6, THEN EVERY 8 WEEKS
     Route: 042
     Dates: start: 20210125, end: 20211221
  3. INFLECTRA [Suspect]
     Active Substance: INFLIXIMAB-DYYB
     Dosage: 300 MG INDUCTION AT WEEK 0, 2, 6, THEN EVERY 8 WEEKS
     Route: 042
     Dates: start: 20211019
  4. INFLECTRA [Suspect]
     Active Substance: INFLIXIMAB-DYYB
     Dosage: 200 MG
     Route: 042
  5. INFLECTRA [Suspect]
     Active Substance: INFLIXIMAB-DYYB
     Dosage: 300 MG ( INCORRECT DOSE ADMINISTERED)
     Route: 042
     Dates: start: 20211221
  6. INFLECTRA [Suspect]
     Active Substance: INFLIXIMAB-DYYB
     Dosage: 200 MG EVERY 8 WEEKS
     Route: 042
     Dates: start: 20220216
  7. INFLECTRA [Suspect]
     Active Substance: INFLIXIMAB-DYYB
     Dosage: 200 MG EVERY 8 WEEKS
     Route: 042
     Dates: start: 20220922
  8. INFLECTRA [Suspect]
     Active Substance: INFLIXIMAB-DYYB
     Dosage: 200 MG EVERY 8 WEEKS
     Route: 042
     Dates: start: 20221219
  9. GABAPENTIN [Concomitant]
     Active Substance: GABAPENTIN
     Dosage: 1 DF, DOSAGE INFO NOT AVAILABLE
     Route: 065
  10. LEFLUNOMIDE [Concomitant]
     Active Substance: LEFLUNOMIDE
     Dosage: 1 DF, DOSAGE INFO NOT AVAILABLE
     Route: 065

REACTIONS (19)
  - Pharyngeal mass [Recovered/Resolved]
  - Scoliosis [Recovered/Resolved]
  - Weight decreased [Not Recovered/Not Resolved]
  - Hypophagia [Not Recovered/Not Resolved]
  - Malaise [Unknown]
  - Skin lesion [Recovering/Resolving]
  - Impaired healing [Unknown]
  - Blister [Not Recovered/Not Resolved]
  - Skin papilloma [Not Recovered/Not Resolved]
  - Pain [Not Recovered/Not Resolved]
  - Discharge [Not Recovered/Not Resolved]
  - Eczema [Unknown]
  - Swelling face [Recovering/Resolving]
  - Skin infection [Recovering/Resolving]
  - Dysphagia [Unknown]
  - Inappropriate schedule of product administration [Unknown]
  - Off label use [Unknown]
  - Incorrect dose administered [Unknown]
  - Off label use [Unknown]

NARRATIVE: CASE EVENT DATE: 20210125
